FAERS Safety Report 11804591 (Version 1)
Quarter: 2015Q4

REPORT INFORMATION
  Report Type: Spontaneous
  Country: US (occurrence: US)
  Receive Date: 20151204
  Receipt Date: 20151204
  Transmission Date: 20160305
  Serious: Yes (Hospitalization)
  Sender: FDA-Public Use
  Company Number: US-ASTRAZENECA-2015SF19742

PATIENT
  Age: 79 Year
  Sex: Male
  Weight: 115.6 kg

DRUGS (11)
  1. METFORMIN [Concomitant]
     Active Substance: METFORMIN HYDROCHLORIDE
  2. ASPIRIN. [Concomitant]
     Active Substance: ASPIRIN
  3. LISINOPRIL. [Suspect]
     Active Substance: LISINOPRIL
     Route: 048
  4. SIMVASTATIN. [Concomitant]
     Active Substance: SIMVASTATIN
  5. TAMSULOSIN [Concomitant]
     Active Substance: TAMSULOSIN
  6. EFFIENT [Concomitant]
     Active Substance: PRASUGREL HYDROCHLORIDE
  7. LORCASERIN [Suspect]
     Active Substance: LORCASERIN HYDROCHLORIDE
     Indication: WEIGHT CONTROL
     Route: 048
     Dates: start: 20140925
  8. MULTIVITAMIN [Concomitant]
     Active Substance: VITAMINS
  9. BRILINTA [Suspect]
     Active Substance: TICAGRELOR
     Route: 048
     Dates: start: 20150602, end: 20150606
  10. CARVEDILOL. [Concomitant]
     Active Substance: CARVEDILOL
  11. CLOPIDOGREL [Concomitant]
     Active Substance: CLOPIDOGREL BISULFATE

REACTIONS (2)
  - Dyspnoea [Recovered/Resolved]
  - Angina pectoris [Recovered/Resolved]

NARRATIVE: CASE EVENT DATE: 20150527
